FAERS Safety Report 7403441-3 (Version None)
Quarter: 2011Q2

REPORT INFORMATION
  Report Type: 
  Country: None (occurrence: None)
  Receive Date: 20110408
  Receipt Date: 20110401
  Transmission Date: 20111010
  Serious: Yes (Other)
  Sender: FDA-Public Use
  Company Number: A0921110A

PATIENT
  Age: 42 Year
  Sex: Female

DRUGS (4)
  1. ADVAIR HFA [Suspect]
     Indication: ASTHMA
     Route: 055
  2. ALBUTEROL INHALER [Concomitant]
  3. INTERFERON [Suspect]
  4. UNSPECIFIED MEDICATION [Concomitant]

REACTIONS (1)
  - INTERSTITIAL LUNG DISEASE [None]
